FAERS Safety Report 6802653-7 (Version None)
Quarter: 2010Q2

REPORT INFORMATION
  Report Type: 
  Country: None (occurrence: None)
  Receive Date: 20100628
  Receipt Date: 20100624
  Transmission Date: 20101027
  Serious: Yes (Hospitalization)
  Sender: FDA-Public Use
  Company Number: PHHO2010PL08831

PATIENT
  Sex: Male
  Weight: 76 kg

DRUGS (1)
  1. TASIGNA [Suspect]
     Indication: GASTROINTESTINAL STROMAL TUMOUR
     Dosage: 800 MG, DAILY
     Route: 048
     Dates: start: 20091130

REACTIONS (2)
  - LOSS OF CONSCIOUSNESS [None]
  - STATUS EPILEPTICUS [None]
